FAERS Safety Report 6098907-5 (Version None)
Quarter: 2009Q1

REPORT INFORMATION
  Report Type: 
  Country: None (occurrence: None)
  Receive Date: 20090302
  Receipt Date: 20090226
  Transmission Date: 20090719
  Serious: Yes (Other)
  Sender: FDA-Public Use
  Company Number: US-PFIZER INC-2008151285

PATIENT
  Sex: Female

DRUGS (3)
  1. LIPITOR [Suspect]
     Dosage: UNK
  2. CRESTOR [Suspect]
     Dosage: UNK
  3. HMG COA REDUCTASE INHIBITORS [Suspect]

REACTIONS (5)
  - ACTIVITIES OF DAILY LIVING IMPAIRED [None]
  - DRUG INTOLERANCE [None]
  - GAIT DISTURBANCE [None]
  - PAIN [None]
  - PAIN IN EXTREMITY [None]
